FAERS Safety Report 6082687-3 (Version None)
Quarter: 2009Q1

REPORT INFORMATION
  Report Type: 
  Country: None (occurrence: None)
  Receive Date: 20090218
  Receipt Date: 20090212
  Transmission Date: 20090719
  Serious: Yes (Hospitalization, Other)
  Sender: FDA-Public Use
  Company Number: PHBS2006JP15994

PATIENT
  Age: 66 Year
  Sex: Male

DRUGS (6)
  1. SANDIMMUNE [Suspect]
     Indication: PUSTULAR PSORIASIS
     Dosage: 350 MG/D
     Route: 048
     Dates: start: 19930101, end: 19990923
  2. SANDIMMUNE [Suspect]
     Dosage: 150 MG/D
     Route: 048
     Dates: start: 19990924, end: 20000608
  3. SANDIMMUNE [Suspect]
     Dosage: 250 MG/DAY
     Dates: end: 20000601
  4. PREDNISOLONE [Concomitant]
     Indication: UVEITIS
     Dosage: UNK
  5. NSAID'S [Concomitant]
     Indication: ARTHRALGIA
     Dosage: UNK
  6. ANTIHYPERTENSIVE DRUGS [Concomitant]
     Indication: HYPERTENSION
     Dosage: UNK

REACTIONS (7)
  - ARTHRALGIA [None]
  - BLOOD CREATININE INCREASED [None]
  - DERMATITIS EXFOLIATIVE [None]
  - PUSTULAR PSORIASIS [None]
  - PYREXIA [None]
  - RASH PUSTULAR [None]
  - WHITE BLOOD CELL COUNT INCREASED [None]
